FAERS Safety Report 12204597 (Version 1)
Quarter: 2016Q1

REPORT INFORMATION
  Report Type: Spontaneous
  Country: GB (occurrence: GB)
  Receive Date: 20160323
  Receipt Date: 20160323
  Transmission Date: 20160526
  Serious: Yes (Hospitalization)
  Sender: FDA-Public Use
  Company Number: GB-TEVA-645303ACC

PATIENT
  Age: 79 Year
  Sex: Female

DRUGS (11)
  1. FENOFIBRATE. [Concomitant]
     Active Substance: FENOFIBRATE
     Dosage: 267 MILLIGRAM DAILY;
  2. ADCAL-D3 [Concomitant]
     Active Substance: CALCIUM CARBONATE\CHOLECALCIFEROL
     Dosage: 2 DOSAGE FORMS DAILY;
  3. FOLIC ACID. [Concomitant]
     Active Substance: FOLIC ACID
     Dosage: 5 MILLIGRAM DAILY;
  4. IBUPROFEN. [Suspect]
     Active Substance: IBUPROFEN
  5. AMLODIPINE [Concomitant]
     Active Substance: AMLODIPINE BESYLATE
     Dosage: 10 MILLIGRAM DAILY;
  6. ALENDRONIC ACID [Suspect]
     Active Substance: ALENDRONIC ACID
  7. PARACETAMOL [Concomitant]
     Active Substance: ACETAMINOPHEN
     Dosage: 4 DOSAGE FORMS DAILY;
  8. MIRTAZAPINE. [Concomitant]
     Active Substance: MIRTAZAPINE
     Dosage: 30 MILLIGRAM DAILY; 30 MILLIGRAM AT NIGHT
  9. BUPRENORPHINE. [Concomitant]
     Active Substance: BUPRENORPHINE
  10. FERROUS FUMARATE [Concomitant]
     Active Substance: FERROUS FUMARATE
     Dosage: 630 MILLIGRAM DAILY;
  11. NITROFURANTOIN. [Concomitant]
     Active Substance: NITROFURANTOIN
     Dosage: 50 MILLIGRAM DAILY; 50 MILLIGRAM AT NIGHT

REACTIONS (2)
  - Upper gastrointestinal haemorrhage [Unknown]
  - Haematemesis [Unknown]
